FAERS Safety Report 20663859 (Version 2)
Quarter: 2022Q3

REPORT INFORMATION
  Report Type: Spontaneous
  Country: NO (occurrence: NO)
  Receive Date: 20220401
  Receipt Date: 20220713
  Transmission Date: 20221026
  Serious: Yes (Other)
  Sender: FDA-Public Use
  Company Number: NO-GSKCCFEMEA-Case-01459474_AE-56549

PATIENT

DRUGS (1)
  1. LAMICTAL [Suspect]
     Active Substance: LAMOTRIGINE
     Indication: Product used for unknown indication
     Dosage: 50 MG

REACTIONS (3)
  - Tongue paralysis [Unknown]
  - Dysgeusia [Unknown]
  - Product complaint [Unknown]
